FAERS Safety Report 4305911-3 (Version None)
Quarter: 2004Q1

REPORT INFORMATION
  Report Type: 
  Country: None (occurrence: None)
  Receive Date: 20040226
  Receipt Date: 20030407
  Transmission Date: 20041129
  Serious: Yes (Hospitalization, Disabling, Other)
  Sender: FDA-Public Use
  Company Number: WAES 0304USA00822

PATIENT
  Age: 61 Year
  Sex: Female
  Weight: 84 kg

DRUGS (7)
  1. PERCOCET [Concomitant]
  2. PEPCID [Concomitant]
  3. LASIX [Concomitant]
     Dates: start: 19600101
  4. HYDRODIURIL [Concomitant]
     Dates: start: 19600101
  5. INSULIN, BIPHASIC ISOPHANE [INJECTION] [Concomitant]
  6. SYNTHROID [Concomitant]
  7. VIOXX [Suspect]
     Indication: BACK PAIN
     Route: 048

REACTIONS (50)
  - ANGINA PECTORIS [None]
  - ANGINA UNSTABLE [None]
  - AORTIC VALVE INCOMPETENCE [None]
  - BACTERIURIA [None]
  - CARDIAC DISORDER [None]
  - CARDIAC FAILURE CONGESTIVE [None]
  - CATARACT [None]
  - CORONARY ARTERY DISEASE [None]
  - DEPRESSION [None]
  - DIABETIC NEPHROPATHY [None]
  - DIABETIC NEUROPATHY [None]
  - DIABETIC RETINAL OEDEMA [None]
  - DIABETIC RETINOPATHY [None]
  - EJECTION FRACTION ABNORMAL [None]
  - ELECTROCARDIOGRAM T WAVE INVERSION [None]
  - ESCHERICHIA INFECTION [None]
  - FATIGUE [None]
  - FEELING ABNORMAL [None]
  - FLUID RETENTION [None]
  - GASTROOESOPHAGEAL REFLUX DISEASE [None]
  - HEADACHE [None]
  - HYPERLIPIDAEMIA [None]
  - HYPERTENSION [None]
  - HYPOGLYCAEMIA [None]
  - HYPOXIA [None]
  - JOINT SWELLING [None]
  - LACUNAR INFARCTION [None]
  - MACULOPATHY [None]
  - METABOLIC ALKALOSIS [None]
  - METASTASES TO LUNG [None]
  - MITRAL VALVE INCOMPETENCE [None]
  - MYOCARDIAL INFARCTION [None]
  - NOCTURIA [None]
  - OEDEMA PERIPHERAL [None]
  - PLEURAL EFFUSION [None]
  - PROTEINURIA [None]
  - PULMONARY EMBOLISM [None]
  - PULMONARY GRANULOMA [None]
  - PULMONARY HYPERTENSION [None]
  - PULMONARY OEDEMA [None]
  - RASH PRURITIC [None]
  - RENAL FAILURE CHRONIC [None]
  - SCOLIOSIS [None]
  - SEASONAL ALLERGY [None]
  - SKIN LESION [None]
  - SPINAL COLUMN STENOSIS [None]
  - TRICUSPID VALVE INCOMPETENCE [None]
  - UPPER LIMB FRACTURE [None]
  - VENTRICULAR HYPERTROPHY [None]
  - WEIGHT INCREASED [None]
